FAERS Safety Report 12972152 (Version 3)
Quarter: 2020Q3

REPORT INFORMATION
  Report Type: Spontaneous
  Country: None (occurrence: AU)
  Receive Date: 20161124
  Receipt Date: 20200721
  Transmission Date: 20201102
  Serious: Yes (Life-Threatening, Hospitalization, Other)
  Sender: FDA-Public Use
  Company Number: AU-ORION CORPORATION ORION PHARMA-TREX2016-2387

PATIENT
  Age: 68 Year
  Sex: Female

DRUGS (4)
  1. AMOXYCILLIN [Concomitant]
     Active Substance: AMOXICILLIN
     Route: 065
  2. METHOTREXATE. [Suspect]
     Active Substance: METHOTREXATE
     Indication: RHEUMATOID ARTHRITIS
     Route: 048
  3. TRIMETHOPRIM SULFAMETHOXAZOLE [Interacting]
     Active Substance: SULFAMETHOXAZOLE\TRIMETHOPRIM
     Indication: PRODUCT USED FOR UNKNOWN INDICATION
     Route: 065
  4. CEPHALEXIN. [Concomitant]
     Active Substance: CEPHALEXIN
     Route: 065

REACTIONS (7)
  - Pancytopenia [Recovering/Resolving]
  - Haematotoxicity [Recovering/Resolving]
  - Toxicity to various agents [Recovering/Resolving]
  - Drug interaction [Unknown]
  - Febrile neutropenia [Recovering/Resolving]
  - Influenza like illness [Recovering/Resolving]
  - Folate deficiency [Recovering/Resolving]
